FAERS Safety Report 5948013-2 (Version None)
Quarter: 2008Q4

REPORT INFORMATION
  Report Type: 
  Country: None (occurrence: None)
  Receive Date: 20081110
  Receipt Date: 20081110
  Transmission Date: 20090506
  Serious: Yes (Hospitalization)
  Sender: FDA-Public Use
  Company Number: None

PATIENT
  Age: 62 Year
  Sex: Male
  Weight: 76.2 kg

DRUGS (1)
  1. PAPAIN/UREA [Suspect]
     Indication: DECUBITUS ULCER
     Dosage: BID TOP
     Route: 061
     Dates: start: 20080708, end: 20080720

REACTIONS (3)
  - EOSINOPHILIA [None]
  - NO THERAPEUTIC RESPONSE [None]
  - PAIN [None]
